FAERS Safety Report 6321266-7 (Version None)
Quarter: 2009Q3

REPORT INFORMATION
  Report Type: 
  Country: None (occurrence: None)
  Receive Date: 20090822
  Receipt Date: 20090108
  Transmission Date: 20100115
  Serious: No
  Sender: FDA-Public Use
  Company Number: US-ABBOTT-09P-163-0496587-00

PATIENT
  Sex: Male
  Weight: 106.69 kg

DRUGS (4)
  1. NIASPAN [Suspect]
     Indication: HIGH DENSITY LIPOPROTEIN DECREASED
     Route: 048
     Dates: start: 20081001, end: 20090101
  2. NIASPAN [Suspect]
     Route: 048
     Dates: start: 20090101
  3. HYTRIN [Concomitant]
     Indication: HYPERTENSION
  4. AVAPRO [Concomitant]
     Indication: HYPERTENSION

REACTIONS (3)
  - BLOOD PRESSURE INCREASED [None]
  - FLUSHING [None]
  - PARAESTHESIA [None]
